FAERS Safety Report 12675751 (Version 1)
Quarter: 2016Q3

REPORT INFORMATION
  Report Type: Spontaneous
  Country: US (occurrence: US)
  Receive Date: 20160823
  Receipt Date: 20160823
  Transmission Date: 20161109
  Serious: No
  Sender: FDA-Public Use
  Company Number: US-JAZZ-2016-US-006571

PATIENT
  Sex: Female

DRUGS (14)
  1. XYREM [Suspect]
     Active Substance: SODIUM OXYBATE
     Dosage: 3 G, BID
     Route: 048
     Dates: start: 201504
  2. DYMISTA [Concomitant]
     Active Substance: AZELASTINE HYDROCHLORIDE\FLUTICASONE PROPIONATE
  3. ACYCLOVIR. [Concomitant]
     Active Substance: ACYCLOVIR
  4. LOVAZA [Concomitant]
     Active Substance: OMEGA-3-ACID ETHYL ESTERS
  5. PROFERRIN [Concomitant]
  6. XYREM [Suspect]
     Active Substance: SODIUM OXYBATE
     Indication: NARCOLEPSY
     Dosage: 2.25 G, BID
     Route: 048
     Dates: start: 201501, end: 201504
  7. ADDERALL [Concomitant]
     Active Substance: AMPHETAMINE ASPARTATE\AMPHETAMINE SULFATE\DEXTROAMPHETAMINE SACCHARATE\DEXTROAMPHETAMINE SULFATE
  8. LEVOTHYROXINE SODIUM. [Concomitant]
     Active Substance: LEVOTHYROXINE SODIUM
  9. MULTIVITAMINS [Concomitant]
     Active Substance: VITAMINS
  10. MOBIC [Concomitant]
     Active Substance: MELOXICAM
  11. FERROUS SULFATE. [Concomitant]
     Active Substance: FERROUS SULFATE
  12. FLUTICASONE [Concomitant]
     Active Substance: FLUTICASONE\FLUTICASONE PROPIONATE
  13. TOZAL [Concomitant]
     Active Substance: ALPHA-TOCOPHEROL\ASCORBIC ACID\CHOLECALCIFEROL\COPPER\CYANOCOBALAMIN\FOLIC ACID\LUTEIN\OMEGA-3 FATTY ACIDS\PYRIDOXINE HYDROCHLORIDE\TAURINE\VITAMIN A PALMITATE\ZEAXANTHIN\ZINC PICOLINATE
  14. MIRAPEX [Concomitant]
     Active Substance: PRAMIPEXOLE DIHYDROCHLORIDE

REACTIONS (2)
  - Nausea [Not Recovered/Not Resolved]
  - Wrong technique in product usage process [Unknown]
